FAERS Safety Report 21681296 (Version 4)
Quarter: 2023Q1

REPORT INFORMATION
  Report Type: Spontaneous
  Country: US (occurrence: US)
  Receive Date: 20221205
  Receipt Date: 20230105
  Transmission Date: 20230417
  Serious: Yes (Disabling, Other)
  Sender: FDA-Public Use
  Company Number: US-SA-SAC20221202001311

PATIENT
  Age: 61 Year
  Sex: Female

DRUGS (1)
  1. DUPIXENT [Suspect]
     Active Substance: DUPILUMAB
     Indication: Asthma
     Dosage: 300 MG, QOW
     Route: 058
     Dates: start: 202209, end: 2022

REACTIONS (7)
  - Gait disturbance [Unknown]
  - Renal impairment [Unknown]
  - Arthritis [Unknown]
  - Urinary tract infection [Unknown]
  - Back pain [Unknown]
  - Illness [Unknown]
  - Arthralgia [Unknown]

NARRATIVE: CASE EVENT DATE: 20221211
